FAERS Safety Report 5197262-2 (Version None)
Quarter: 2006Q4

REPORT INFORMATION
  Report Type: 
  Country: None (occurrence: None)
  Receive Date: 20061228
  Receipt Date: 20061211
  Transmission Date: 20070319
  Serious: Yes (Death, Life-Threatening, Hospitalization)
  Sender: FDA-Public Use
  Company Number: 232793

PATIENT
  Age: 68 Year
  Sex: Female
  Weight: 65 kg

DRUGS (8)
  1. AVASTIN [Suspect]
     Indication: COLORECTAL CANCER METASTATIC
     Dosage: 487 MG, Q3W, INTRAVENOUS
     Route: 042
     Dates: start: 20061031, end: 20061105
  2. CAPECITABINE (CAPECITABINE) [Suspect]
     Indication: COLORECTAL CANCER METASTATIC
     Dosage: 3300 MG, Q3W, ORAL
     Route: 048
     Dates: start: 20061031, end: 20061204
  3. MITOMYCIN [Suspect]
     Indication: COLORECTAL CANCER METASTATIC
     Dosage: 11 MG, Q3W, INTRAVENOUS
     Route: 042
     Dates: start: 20061031
  4. MAXOLON [Concomitant]
  5. SINEMET [Concomitant]
  6. AVAPRO [Concomitant]
  7. TROPISETRON (TROPISETRON HYDROCHLORIDE) [Concomitant]
  8. DEXAMETHASONE TAB [Concomitant]

REACTIONS (3)
  - NEUTROPENIC COLITIS [None]
  - PERIPHERAL EMBOLISM [None]
  - PLATELET COUNT INCREASED [None]
